FAERS Safety Report 24162457 (Version 1)
Quarter: 2024Q3

REPORT INFORMATION
  Report Type: Spontaneous
  Country: AU (occurrence: AU)
  Receive Date: 20240801
  Receipt Date: 20240801
  Transmission Date: 20241017
  Serious: Yes (Other)
  Sender: ACCORD
  Company Number: None

PATIENT
  Age: 67 Year
  Sex: Female

DRUGS (8)
  1. TACROLIMUS [Suspect]
     Active Substance: TACROLIMUS
     Indication: Product used for unknown indication
  2. CYTARABINE [Suspect]
     Active Substance: CYTARABINE
     Indication: Product used for unknown indication
  3. AMSACRINE [Suspect]
     Active Substance: AMSACRINE
     Indication: Product used for unknown indication
  4. FLUDARABINE [Suspect]
     Active Substance: FLUDARABINE PHOSPHATE
     Indication: Product used for unknown indication
  5. MELPHALAN [Suspect]
     Active Substance: MELPHALAN
     Indication: Product used for unknown indication
  6. PREDNISOLONE [Suspect]
     Active Substance: PREDNISOLONE
     Indication: Product used for unknown indication
  7. CYCLOSPORINE [Concomitant]
     Active Substance: CYCLOSPORINE
  8. METHOTREXATE [Concomitant]
     Active Substance: METHOTREXATE

REACTIONS (2)
  - Thrombotic microangiopathy [Unknown]
  - Drug ineffective [Unknown]
